FAERS Safety Report 24326920 (Version 2)
Quarter: 2024Q4

REPORT INFORMATION
  Report Type: Spontaneous
  Country: NL (occurrence: NL)
  Receive Date: 20240917
  Receipt Date: 20241002
  Transmission Date: 20250115
  Serious: Yes (Other)
  Sender: AMGEN
  Company Number: NL-AMGEN-NLDSP2024182699

PATIENT
  Age: 63 Year
  Sex: Female
  Weight: 64 kg

DRUGS (3)
  1. DENOSUMAB [Suspect]
     Active Substance: DENOSUMAB
     Indication: Product used for unknown indication
     Dosage: 1X PER 6M 1 PIECE
     Route: 065
     Dates: start: 20220101, end: 202306
  2. OXYCODONE [Concomitant]
     Active Substance: OXYCODONE
     Dosage: CAPSULE, 5 MG (MILLIGRAM)
  3. BUPRENORPHINE [Concomitant]
     Active Substance: BUPRENORPHINE
     Dosage: PLASTER 10 MUG (MICROGRAM) PER HOUR

REACTIONS (2)
  - Spinal fracture [Not Recovered/Not Resolved]
  - Withdrawal syndrome [Not Recovered/Not Resolved]
